FAERS Safety Report 15465371 (Version 1)
Quarter: 2018Q4

REPORT INFORMATION
  Report Type: Spontaneous
  Country: FR (occurrence: FR)
  Receive Date: 20181004
  Receipt Date: 20181004
  Transmission Date: 20190204
  Serious: Yes (Other)
  Sender: FDA-Public Use
  Company Number: FR-ALLERGAN-1847714US

PATIENT
  Age: 68 Year
  Sex: Female

DRUGS (1)
  1. RISEDRONATE SODIUM - BP [Suspect]
     Active Substance: RISEDRONATE SODIUM
     Indication: PRODUCT USED FOR UNKNOWN INDICATION
     Dosage: 1 DF (75 MG), QD, 2 CONSECUTIVE DAYS PER MONTH
     Route: 048
     Dates: start: 2015

REACTIONS (2)
  - Therapy cessation [Unknown]
  - Osteomyelitis [Unknown]
